FAERS Safety Report 10563725 (Version 3)
Quarter: 2015Q1

REPORT INFORMATION
  Report Type: Spontaneous
  Country: US (occurrence: US)
  Receive Date: 20141104
  Receipt Date: 20150210
  Transmission Date: 20150720
  Serious: No
  Sender: FDA-Public Use
  Company Number: US-GLAXOSMITHKLINE-A1076073A

PATIENT

DRUGS (1)
  1. TYKERB [Suspect]
     Active Substance: LAPATINIB DITOSYLATE
     Indication: BREAST CANCER
     Dosage: 250 MG, 5 TABLETS PER DAY FOR 21 DAYS FOLLOWED BY A 1 WEEK BREAK.
     Route: 048
     Dates: start: 20131218, end: 2014

REACTIONS (2)
  - Vomiting [Unknown]
  - Disease progression [Unknown]
